FAERS Safety Report 10285954 (Version 1)
Quarter: 2014Q3

REPORT INFORMATION
  Report Type: Spontaneous
  Country: US (occurrence: None)
  Receive Date: 20140703
  Receipt Date: 20140703
  Transmission Date: 20150326
  Serious: Yes (Disabling)
  Sender: FDA-Public Use
  Company Number: None

PATIENT
  Age: 14 Year
  Sex: Male
  Weight: 79.38 kg

DRUGS (1)
  1. FINASTERIDE. [Suspect]
     Active Substance: FINASTERIDE
     Indication: ALOPECIA
     Route: 048

REACTIONS (12)
  - Disturbance in attention [None]
  - Asthenia [None]
  - Mental impairment [None]
  - Mental disorder [None]
  - Irritability [None]
  - Depression [None]
  - Weight increased [None]
  - Breast enlargement [None]
  - Fatigue [None]
  - Amnesia [None]
  - Bradyphrenia [None]
  - Hypersomnia [None]

NARRATIVE: CASE EVENT DATE: 20131218
